FAERS Safety Report 8174044-0 (Version None)
Quarter: 2012Q1

REPORT INFORMATION
  Report Type: 
  Country: None (occurrence: None)
  Receive Date: 20120229
  Receipt Date: 20120214
  Transmission Date: 20120608
  Serious: Yes (Hospitalization)
  Sender: FDA-Public Use
  Company Number: SE-CELGENEUS-150-21880-11120554

PATIENT
  Sex: Male
  Weight: 72.3 kg

DRUGS (1)
  1. REVLIMID [Suspect]
     Dosage: 25 MILLIGRAM
     Route: 048
     Dates: start: 20111012

REACTIONS (3)
  - NAUSEA [None]
  - GASTRIC ULCER [None]
  - ABDOMINAL PAIN [None]
